FAERS Safety Report 9102931 (Version 4)
Quarter: 2013Q2

REPORT INFORMATION
  Report Type: Spontaneous
  Country: IT (occurrence: IT)
  Receive Date: 20130219
  Receipt Date: 20130528
  Transmission Date: 20140414
  Serious: Yes (Hospitalization)
  Sender: FDA-Public Use
  Company Number: IT-PFIZER INC-2013062310

PATIENT
  Age: 40 Year
  Sex: Female

DRUGS (6)
  1. CLOTIAZEPAM [Suspect]
     Indication: INTENTIONAL SELF-INJURY
     Dosage: 10 MG, 1X/DAY
     Route: 048
     Dates: start: 201210
  2. CLOTIAZEPAM [Suspect]
     Dosage: 10 DF, UNK
     Route: 048
     Dates: start: 20130205, end: 20130205
  3. XANAX [Suspect]
     Indication: INTENTIONAL SELF-INJURY
     Dosage: 1 MG, 1X/DAY
     Route: 048
     Dates: start: 201210
  4. XANAX [Suspect]
     Dosage: 20 MG, UNK
     Route: 048
     Dates: start: 20130205, end: 20130205
  5. SEREUPIN [Suspect]
     Indication: INTENTIONAL SELF-INJURY
     Dosage: 20 MG, 1X/DAY
     Route: 048
     Dates: start: 201210
  6. SEREUPIN [Suspect]
     Dosage: 280 MG, UNK
     Route: 048
     Dates: start: 20130205, end: 20130205

REACTIONS (5)
  - Intentional self-injury [Recovered/Resolved]
  - Bradykinesia [Recovered/Resolved]
  - Hypotension [Recovered/Resolved]
  - Bradyphrenia [Recovered/Resolved]
  - Drug abuse [Recovered/Resolved]
